FAERS Safety Report 6711303-X (Version None)
Quarter: 2010Q2

REPORT INFORMATION
  Report Type: 
  Country: None (occurrence: None)
  Receive Date: 20100505
  Receipt Date: 20100428
  Transmission Date: 20101027
  Serious: Yes (Other)
  Sender: FDA-Public Use
  Company Number: BE-PFIZER INC-2010054046

PATIENT
  Sex: Female

DRUGS (2)
  1. TOVIAZ [Suspect]
     Dosage: 4 MG, 1X/DAY
     Route: 048
  2. DITROPAN [Concomitant]

REACTIONS (2)
  - BLOOD PRESSURE INCREASED [None]
  - MALAISE [None]
